FAERS Safety Report 25902317 (Version 1)
Quarter: 2025Q4

REPORT INFORMATION
  Report Type: Spontaneous
  Country: US (occurrence: US)
  Receive Date: 20251009
  Receipt Date: 20251009
  Transmission Date: 20260117
  Serious: No
  Sender: CB FLEET
  Company Number: US-PRESTIGE-202504-US-001169

PATIENT
  Sex: Female

DRUGS (1)
  1. MICONAZOLE 1 WALGREENS [Suspect]
     Active Substance: MICONAZOLE NITRATE
     Indication: Fungal infection
     Dosage: I WAS NOT ABLE TO USE THE PRODUCT

REACTIONS (2)
  - Vulvovaginal injury [Recovered/Resolved]
  - Vaginal haemorrhage [Recovered/Resolved]
